FAERS Safety Report 19817955 (Version 3)
Quarter: 2021Q4

REPORT INFORMATION
  Report Type: Report from Study
  Country: None (occurrence: US)
  Receive Date: 20210910
  Receipt Date: 20211008
  Transmission Date: 20220303
  Serious: Yes (Other)
  Sender: FDA-Public Use
  Company Number: US-ABBVIE-21K-163-4066385-00

PATIENT
  Age: 51 Year
  Sex: Female
  Weight: 99.43 kg

DRUGS (9)
  1. SKYRIZI [Suspect]
     Active Substance: RISANKIZUMAB-RZAA
     Indication: Psoriasis
     Route: 058
     Dates: start: 20210226, end: 20210226
  2. SKYRIZI [Suspect]
     Active Substance: RISANKIZUMAB-RZAA
     Indication: Psoriasis
     Route: 058
     Dates: start: 20210329, end: 20210329
  3. SKYRIZI [Suspect]
     Active Substance: RISANKIZUMAB-RZAA
     Indication: Guttate psoriasis
     Route: 058
     Dates: start: 20210614
  4. CLOBETASOL [Suspect]
     Active Substance: CLOBETASOL
     Indication: Psoriasis
     Route: 065
  5. CLOBETASOL [Suspect]
     Active Substance: CLOBETASOL
     Indication: Pruritus
  6. VITAMIN C [Concomitant]
     Active Substance: ASCORBIC ACID
     Indication: Supplementation therapy
  7. ZINC [Concomitant]
     Active Substance: ZINC
     Indication: Supplementation therapy
  8. FOLIC ACID [Concomitant]
     Active Substance: FOLIC ACID
     Indication: Supplementation therapy
  9. HYDROGEN PEROXIDE [Concomitant]
     Active Substance: HYDROGEN PEROXIDE
     Indication: Psoriasis

REACTIONS (23)
  - Osteoarthritis [Recovered/Resolved]
  - Gout [Recovered/Resolved]
  - Product use in unapproved indication [Not Recovered/Not Resolved]
  - Pruritus [Not Recovered/Not Resolved]
  - Immunodeficiency [Not Recovered/Not Resolved]
  - Weight decreased [Recovered/Resolved]
  - Blood glucose increased [Recovering/Resolving]
  - Impaired healing [Recovered/Resolved]
  - Drug ineffective [Recovered/Resolved]
  - Eczema [Unknown]
  - Psoriasis [Unknown]
  - Dental caries [Unknown]
  - Gingival pruritus [Unknown]
  - Unevaluable event [Unknown]
  - Neoplasm malignant [Unknown]
  - Impaired healing [Unknown]
  - Diabetes mellitus [Unknown]
  - Weight increased [Unknown]
  - Arthropathy [Unknown]
  - Nipple exudate bloody [Unknown]
  - General physical condition abnormal [Unknown]
  - Anxiety [Unknown]
  - Gout [Unknown]

NARRATIVE: CASE EVENT DATE: 20210226
